FAERS Safety Report 6951485-8 (Version None)
Quarter: 2010Q3

REPORT INFORMATION
  Report Type: 
  Country: None (occurrence: None)
  Receive Date: 20100828
  Receipt Date: 20100329
  Transmission Date: 20110219
  Serious: No
  Sender: FDA-Public Use
  Company Number: US-ABBOTT-10P-163-0635237-00

PATIENT
  Sex: Male
  Weight: 87.168 kg

DRUGS (11)
  1. NIASPAN [Suspect]
     Indication: BLOOD CHOLESTEROL INCREASED
     Dosage: 500 MG DAILY AT BEDTIME
     Dates: start: 20100319, end: 20100324
  2. NIASPAN [Suspect]
     Indication: HIGH DENSITY LIPOPROTEIN DECREASED
     Dosage: 1000 MG DAILY AT BEDTIME
     Dates: start: 20100325
  3. ASPIRIN [Concomitant]
     Indication: PRODUCT USED FOR UNKNOWN INDICATION
  4. CRESTOR [Concomitant]
     Indication: PRODUCT USED FOR UNKNOWN INDICATION
  5. LISINOPRIL [Concomitant]
     Indication: PRODUCT USED FOR UNKNOWN INDICATION
  6. MVT [Concomitant]
     Indication: PRODUCT USED FOR UNKNOWN INDICATION
  7. OMEPRAZOLE [Concomitant]
     Indication: PRODUCT USED FOR UNKNOWN INDICATION
  8. BYSTOLIC [Concomitant]
     Indication: PRODUCT USED FOR UNKNOWN INDICATION
  9. FISH OIL [Concomitant]
     Indication: PRODUCT USED FOR UNKNOWN INDICATION
  10. FLAXSEED OIL [Concomitant]
     Indication: PRODUCT USED FOR UNKNOWN INDICATION
  11. CALCIUM [Concomitant]
     Indication: PRODUCT USED FOR UNKNOWN INDICATION

REACTIONS (4)
  - FLUSHING [None]
  - FORMICATION [None]
  - LIMB DISCOMFORT [None]
  - PRURITUS [None]
